FAERS Safety Report 4650342-X (Version None)
Quarter: 2005Q2

REPORT INFORMATION
  Report Type: 
  Country: None (occurrence: None)
  Receive Date: 20050429
  Receipt Date: 20050419
  Transmission Date: 20051028
  Serious: Yes (Other)
  Sender: FDA-Public Use
  Company Number: 2005RL000039

PATIENT
  Age: 68 Year
  Sex: Female
  Weight: 83.0083 kg

DRUGS (10)
  1. RYTHMOL [Suspect]
     Indication: ATRIAL FIBRILLATION
     Dosage: 325 MG; BID ; PO
     Route: 048
     Dates: start: 20041210, end: 20050102
  2. TOPROL-XL [Concomitant]
  3. TRILEPTAL [Concomitant]
  4. LISINOPRIL [Concomitant]
  5. LEVOXYL [Concomitant]
  6. COUMADIN [Concomitant]
  7. DAILY MULTIVITAMIN [Concomitant]
  8. LIPITOR [Concomitant]
  9. VITAMINS NOS [Concomitant]
  10. CALCIUM GLUCONATE [Concomitant]

REACTIONS (17)
  - ABDOMINAL DISTENSION [None]
  - ABDOMINAL PAIN UPPER [None]
  - ANURIA [None]
  - CARDIAC FAILURE CONGESTIVE [None]
  - CONSTIPATION [None]
  - CRACKLES LUNG [None]
  - DYSPNOEA [None]
  - EPISTAXIS [None]
  - FEEDING DISORDER [None]
  - FLUID RETENTION [None]
  - GASTRIC HYPOMOTILITY [None]
  - HAEMOPTYSIS [None]
  - INTESTINAL HYPOMOTILITY [None]
  - SENSATION OF FOREIGN BODY [None]
  - THROAT IRRITATION [None]
  - TREATMENT NONCOMPLIANCE [None]
  - WHEEZING [None]
